FAERS Safety Report 5836739-0 (Version None)
Quarter: 2008Q3

REPORT INFORMATION
  Report Type: 
  Country: None (occurrence: None)
  Receive Date: 20080807
  Receipt Date: 20080730
  Transmission Date: 20090109
  Serious: Yes (Other)
  Sender: FDA-Public Use
  Company Number: US-AMGEN-QUU298121

PATIENT
  Sex: Male

DRUGS (2)
  1. ENBREL [Suspect]
     Indication: ANKYLOSING SPONDYLITIS
     Route: 058
     Dates: start: 20010601
  2. REMICADE [Concomitant]
     Dates: start: 20010101, end: 20010101

REACTIONS (5)
  - CARDIAC ARREST [None]
  - FATIGUE [None]
  - NAUSEA [None]
  - RASH PRURITIC [None]
  - SKIN PAPILLOMA [None]
